FAERS Safety Report 8940940 (Version 2)
Quarter: 2012Q4

REPORT INFORMATION
  Report Type: 
  Country: JP (occurrence: JP)
  Receive Date: 20121203
  Receipt Date: 20121211
  Transmission Date: 20130627
  Serious: Yes (Other)
  Sender: FDA-Public Use
  Company Number: JP-ROCHE-1163115

PATIENT
  Age: 50 Year
  Sex: Female

DRUGS (2)
  1. AVASTIN [Suspect]
     Indication: BREAST CANCER
     Dosage: Dosage is uncertain.
     Route: 041
     Dates: start: 20120731
  2. PACLITAXEL [Concomitant]
     Indication: BREAST CANCER
     Dosage: Dosage is uncertain.
     Route: 041

REACTIONS (2)
  - Fall [Unknown]
  - Fracture [Unknown]
